FAERS Safety Report 9207430 (Version 2)
Quarter: 2013Q3

REPORT INFORMATION
  Report Type: Spontaneous
  Country: US (occurrence: None)
  Receive Date: 20120817
  Receipt Date: 20130815
  Transmission Date: 20140515
  Serious: Yes (Other)
  Sender: FDA-Public Use
  Company Number: ADR-2012-00809

PATIENT
  Sex: Female

DRUGS (1)
  1. BACLOFEN [Suspect]
     Indication: MUSCLE SPASTICITY
     Route: 037

REACTIONS (6)
  - Hypotension [None]
  - Muscle tightness [None]
  - Hypotonia [None]
  - Therapeutic response decreased [None]
  - Muscular weakness [None]
  - Muscle spasticity [None]
